FAERS Safety Report 9222231 (Version 2)
Quarter: 2013Q2

REPORT INFORMATION
  Report Type: Spontaneous
  Country: US (occurrence: None)
  Receive Date: 20130408
  Receipt Date: 20130424
  Transmission Date: 20140414
  Serious: Yes (Death, Life-Threatening, Hospitalization)
  Sender: FDA-Public Use
  Company Number: UTC-030541

PATIENT
  Age: 63 Year
  Sex: Male
  Weight: 72.7 kg

DRUGS (2)
  1. REMODULIN [Suspect]
     Indication: COR PULMONALE CHRONIC
     Dosage: 112.32 UG/KG (0.078 UG/KG, 1 IN 1 MIN), INTRAVENOUS DRIP
     Route: 041
     Dates: start: 20100513
  2. VIAGRA (SILDENAFIL) (UNKNOWN) [Concomitant]

REACTIONS (5)
  - Respiratory failure [None]
  - Cardiogenic shock [None]
  - Pulmonary hypertension [None]
  - Right ventricular failure [None]
  - Condition aggravated [None]
